FAERS Safety Report 20733269 (Version 7)
Quarter: 2023Q1

REPORT INFORMATION
  Report Type: Report from Study
  Country: US (occurrence: US)
  Receive Date: 20220421
  Receipt Date: 20230313
  Transmission Date: 20230418
  Serious: Yes (Hospitalization, Other)
  Sender: FDA-Public Use
  Company Number: US-AUROBINDO-AUR-APL-2022-012296

PATIENT
  Age: 52 Year
  Sex: Male
  Weight: 67.6 kg

DRUGS (3)
  1. BELINOSTAT [Suspect]
     Active Substance: BELINOSTAT
     Indication: Chondrosarcoma metastatic
     Dosage: 675 UNK
     Route: 065
     Dates: start: 20220228, end: 20220403
  2. CEDAZURIDINE\DECITABINE [Suspect]
     Active Substance: CEDAZURIDINE\DECITABINE
     Indication: Chondrosarcoma metastatic
     Dosage: 135 UNK
     Route: 065
     Dates: start: 20220328, end: 20220403
  3. CEDAZURIDINE\DECITABINE [Suspect]
     Active Substance: CEDAZURIDINE\DECITABINE
     Dosage: 675 UNK
     Route: 065
     Dates: start: 20220403

REACTIONS (10)
  - Sepsis [Recovering/Resolving]
  - Anaemia [Unknown]
  - Hypokalaemia [Unknown]
  - Hyperkalaemia [Unknown]
  - Nausea [Unknown]
  - Anxiety [Unknown]
  - Vomiting [Unknown]
  - Dysgeusia [Unknown]
  - Hyponatraemia [Unknown]
  - Stomatitis [Unknown]

NARRATIVE: CASE EVENT DATE: 20220204
